FAERS Safety Report 5774275-0 (Version None)
Quarter: 2008Q2

REPORT INFORMATION
  Report Type: 
  Country: None (occurrence: None)
  Receive Date: 20080616
  Receipt Date: 20080611
  Transmission Date: 20081010
  Serious: Yes (Death, Other)
  Sender: FDA-Public Use
  Company Number: JP-AVENTIS-200810681JP

PATIENT
  Age: 68 Year
  Sex: Male
  Weight: 53 kg

DRUGS (18)
  1. TAXOTERE [Suspect]
     Indication: OESOPHAGEAL SQUAMOUS CELL CARCINOMA STAGE IV
     Dosage: DOSE: 16 MG/M**2
     Route: 041
     Dates: start: 20071105, end: 20071210
  2. TAXOTERE [Suspect]
     Dosage: DOSE: 96 MG
     Route: 041
     Dates: start: 20080109, end: 20080130
  3. RADIATION [Concomitant]
     Indication: OESOPHAGEAL SQUAMOUS CELL CARCINOMA STAGE IV
     Dosage: DOSE: TOTAL 56 GY
     Dates: start: 20071031, end: 20071212
  4. LEVOFLOXACIN [Concomitant]
     Indication: INFECTION
     Route: 048
     Dates: start: 20071115, end: 20071125
  5. LEVOFLOXACIN [Concomitant]
     Route: 048
     Dates: start: 20071211, end: 20071218
  6. LEVOFLOXACIN [Concomitant]
     Indication: PYREXIA
     Route: 048
     Dates: start: 20071115, end: 20071125
  7. LEVOFLOXACIN [Concomitant]
     Route: 048
     Dates: start: 20071211, end: 20071218
  8. RABEPRAZOLE SODIUM [Concomitant]
     Indication: OESOPHAGITIS
     Route: 048
     Dates: start: 20071115, end: 20080217
  9. LOXONIN                            /00890701/ [Concomitant]
     Indication: PYREXIA
     Dosage: DOSE: 60 MG/PRN
     Route: 048
     Dates: start: 20071115
  10. MALFA                              /00091001/ [Concomitant]
     Indication: OESOPHAGITIS
     Route: 048
     Dates: start: 20071122, end: 20071211
  11. PL GRAN. [Concomitant]
     Indication: PYREXIA
     Route: 048
     Dates: start: 20071211, end: 20071218
  12. FLOMOX [Concomitant]
     Indication: PNEUMONIA
     Route: 048
     Dates: start: 20080130, end: 20080208
  13. ZOFRAN [Concomitant]
     Indication: PREMEDICATION
     Dosage: DOSE: 4 MG
     Dates: start: 20071112
  14. DECADRON [Concomitant]
     Indication: PREMEDICATION
     Dosage: DOSE: 24 MG
     Dates: start: 20071112
  15. DECADRON [Concomitant]
  16. FAMOTIDINE [Concomitant]
     Indication: PREMEDICATION
     Dosage: DOSE: 20 MG
     Dates: start: 20080109
  17. CHLOR-TRIMETON                     /00072502/ [Concomitant]
     Indication: PREMEDICATION
     Dosage: DOSE: 10 MG
  18. ZANTAC [Concomitant]
     Indication: PREMEDICATION
     Dosage: DOSE: 100 MG

REACTIONS (2)
  - INTERSTITIAL LUNG DISEASE [None]
  - PNEUMONIA [None]
